FAERS Safety Report 14267606 (Version 1)
Quarter: 2017Q4

REPORT INFORMATION
  Report Type: Spontaneous
  Country: US (occurrence: US)
  Receive Date: 20171210
  Receipt Date: 20171210
  Transmission Date: 20180321
  Serious: Yes (Hospitalization, Disabling)
  Sender: FDA-Public Use
  Company Number: None

PATIENT
  Age: 49 Year
  Sex: Female
  Weight: 94.5 kg

DRUGS (7)
  1. IBUPROPHEN [Concomitant]
     Active Substance: IBUPROFEN
  2. VENTOLIN [Concomitant]
     Active Substance: ALBUTEROL SULFATE
  3. GABAPENTIN. [Suspect]
     Active Substance: GABAPENTIN
     Indication: POST HERPETIC NEURALGIA
     Dosage: ?          QUANTITY:1 TABLET(S);?
     Route: 048
     Dates: start: 20170814, end: 20170909
  4. AMILORIDE [Concomitant]
     Active Substance: AMILORIDE
  5. VALIUM [Concomitant]
     Active Substance: DIAZEPAM
  6. LISINOPRIL. [Concomitant]
     Active Substance: LISINOPRIL
  7. OMEPREZOL [Concomitant]

REACTIONS (10)
  - Dystonia [None]
  - Diplopia [None]
  - Headache [None]
  - Unresponsive to stimuli [None]
  - Disturbance in attention [None]
  - Fall [None]
  - Peripheral swelling [None]
  - Nausea [None]
  - Seizure like phenomena [None]
  - Vision blurred [None]

NARRATIVE: CASE EVENT DATE: 20170906
